FAERS Safety Report 6247504-7 (Version None)
Quarter: 2009Q2

REPORT INFORMATION
  Report Type: 
  Country: None (occurrence: None)
  Receive Date: 20090626
  Receipt Date: 20090618
  Transmission Date: 20091009
  Serious: Yes (Hospitalization)
  Sender: FDA-Public Use
  Company Number: FR-JNJFOC-20090607147

PATIENT
  Age: 36 Year
  Sex: Male

DRUGS (2)
  1. RISPERDAL [Suspect]
     Indication: DRUG USE FOR UNKNOWN INDICATION
     Route: 048
  2. XANAX [Concomitant]
     Route: 048

REACTIONS (2)
  - LEUKOPENIA [None]
  - TREATMENT NONCOMPLIANCE [None]
